FAERS Safety Report 21400657 (Version 2)
Quarter: 2022Q4

REPORT INFORMATION
  Report Type: Spontaneous
  Country: TR (occurrence: TR)
  Receive Date: 20221003
  Receipt Date: 20221213
  Transmission Date: 20230113
  Serious: Yes (Other)
  Sender: FDA-Public Use
  Company Number: TR-BRISTOL-MYERS SQUIBB COMPANY-2022-104572

PATIENT
  Age: 59 Year
  Sex: Male
  Weight: 80 kg

DRUGS (7)
  1. OPDIVO [Suspect]
     Active Substance: NIVOLUMAB
     Indication: Non-small cell lung cancer
     Dosage: DOSE : 240 MG;     FREQ : EVERY 15 DAYS
     Route: 042
     Dates: start: 20220419
  2. DILTIAZEM [Concomitant]
     Active Substance: DILTIAZEM
     Indication: Product used for unknown indication
  3. ASPIRIN [Concomitant]
     Active Substance: ASPIRIN
     Indication: Product used for unknown indication
  4. LIPITOR [Concomitant]
     Active Substance: ATORVASTATIN CALCIUM
     Indication: Product used for unknown indication
  5. PANTOPRAZOLE [Concomitant]
     Active Substance: PANTOPRAZOLE
     Indication: Product used for unknown indication
  6. COLCHICINE [Concomitant]
     Active Substance: COLCHICINE
     Indication: Product used for unknown indication
  7. LEVOTHYROXINE SODIUM [Concomitant]
     Active Substance: LEVOTHYROXINE SODIUM
     Indication: Product used for unknown indication
     Dosage: 100 WEEKDAYS- 125 WEEKENDS

REACTIONS (7)
  - Hypothyroidism [Unknown]
  - Fatigue [Unknown]
  - Weight decreased [Unknown]
  - Decreased appetite [Recovered/Resolved]
  - Off label use [Unknown]
  - Gait disturbance [Unknown]
  - Muscular weakness [Unknown]

NARRATIVE: CASE EVENT DATE: 20220701
